FAERS Safety Report 9509949 (Version 2)
Quarter: 2014Q3

REPORT INFORMATION
  Report Type: Spontaneous
  Country: US (occurrence: US)
  Receive Date: 20130909
  Receipt Date: 20140908
  Transmission Date: 20150326
  Serious: No
  Sender: FDA-Public Use
  Company Number: US-BRISTOL-MYERS SQUIBB COMPANY-18793356

PATIENT
  Age: 37 Year
  Sex: Female
  Weight: 66.66 kg

DRUGS (1)
  1. ABILIFY [Suspect]
     Active Substance: ARIPIPRAZOLE
     Dosage: INITIAL DOSE 10MG CHANGED TO 20MG.

REACTIONS (3)
  - Drug dose omission [Unknown]
  - Areflexia [Unknown]
  - Memory impairment [Unknown]
